FAERS Safety Report 6998314-4 (Version None)
Quarter: 2010Q3

REPORT INFORMATION
  Report Type: 
  Country: None (occurrence: None)
  Receive Date: 20100920
  Receipt Date: 20100709
  Transmission Date: 20110219
  Serious: No
  Sender: FDA-Public Use
  Company Number: US-ASTRAZENECA-2010SE32172

PATIENT
  Age: 42 Year
  Sex: Female
  Weight: 49 kg

DRUGS (11)
  1. SEROQUEL [Suspect]
     Indication: DEPRESSION
     Route: 048
     Dates: start: 20100708
  2. SEROQUEL [Suspect]
     Indication: ANXIETY
     Route: 048
     Dates: start: 20100708
  3. SEROQUEL [Suspect]
     Indication: INSOMNIA
     Route: 048
     Dates: start: 20100708
  4. SEROQUEL [Suspect]
     Route: 048
     Dates: start: 20100709
  5. SEROQUEL [Suspect]
     Route: 048
     Dates: start: 20100709
  6. SEROQUEL [Suspect]
     Route: 048
     Dates: start: 20100709
  7. SEROQUEL [Suspect]
     Route: 048
     Dates: start: 20100710
  8. SEROQUEL [Suspect]
     Route: 048
     Dates: start: 20100710
  9. SEROQUEL [Suspect]
     Route: 048
     Dates: start: 20100710
  10. ATIVAN [Suspect]
     Indication: SLEEP DISORDER
     Dates: start: 20100101
  11. LORAZEPAM [Concomitant]
     Indication: ANXIETY

REACTIONS (8)
  - CHILLS [None]
  - DRY MOUTH [None]
  - HYPERHIDROSIS [None]
  - SEDATION [None]
  - SLUGGISHNESS [None]
  - SOMNOLENCE [None]
  - THROAT IRRITATION [None]
  - WITHDRAWAL SYNDROME [None]
